FAERS Safety Report 5389112-6 (Version None)
Quarter: 2007Q3

REPORT INFORMATION
  Report Type: 
  Country: None (occurrence: None)
  Receive Date: 20070717
  Receipt Date: 20070704
  Transmission Date: 20080115
  Serious: Yes (Hospitalization)
  Sender: FDA-Public Use
  Company Number: CZ-ROCHE-506452

PATIENT
  Age: 60 Year
  Sex: Female

DRUGS (9)
  1. BONIVA [Suspect]
     Indication: OSTEOPOROSIS
     Route: 048
     Dates: start: 20070309, end: 20070609
  2. OXYPHYLLIN [Concomitant]
  3. ISOPTIN [Concomitant]
  4. DIGOXIN [Concomitant]
  5. MODURETIC 5-50 [Concomitant]
  6. GASEC [Concomitant]
  7. ZYRTEC [Concomitant]
  8. CORTICOSTEROIDS [Concomitant]
     Route: 055
  9. WARFARIN SODIUM [Concomitant]

REACTIONS (2)
  - NEURALGIA [None]
  - TACHYCARDIA [None]
